FAERS Safety Report 20205818 (Version 7)
Quarter: 2022Q2

REPORT INFORMATION
  Report Type: Report from Study
  Country: US (occurrence: US)
  Receive Date: 20211220
  Receipt Date: 20220621
  Transmission Date: 20220720
  Serious: Yes (Other)
  Sender: FDA-Public Use
  Company Number: US-LUNDBECK-DKLU3041813

PATIENT
  Age: 31 Year
  Sex: Female

DRUGS (2)
  1. VYEPTI [Suspect]
     Active Substance: EPTINEZUMAB-JJMR
     Indication: Hemiplegic migraine
     Route: 041
     Dates: start: 202012
  2. VYEPTI [Suspect]
     Active Substance: EPTINEZUMAB-JJMR
     Indication: Migraine
     Route: 041
     Dates: start: 20220615

REACTIONS (8)
  - Hemiplegia [Not Recovered/Not Resolved]
  - Facial paralysis [Not Recovered/Not Resolved]
  - Migraine [Recovering/Resolving]
  - Pain of skin [Recovering/Resolving]
  - Feeling abnormal [Not Recovered/Not Resolved]
  - Therapeutic response shortened [Recovering/Resolving]
  - Cluster headache [Not Recovered/Not Resolved]
  - Condition aggravated [Not Recovered/Not Resolved]

NARRATIVE: CASE EVENT DATE: 20211130
